FAERS Safety Report 6404086-4 (Version None)
Quarter: 2009Q4

REPORT INFORMATION
  Report Type: 
  Country: None (occurrence: None)
  Receive Date: 20091016
  Receipt Date: 20091008
  Transmission Date: 20100525
  Serious: Yes (Hospitalization)
  Sender: FDA-Public Use
  Company Number: FR-PFIZER INC-2009280129

PATIENT
  Age: 87 Year

DRUGS (5)
  1. AMLOR [Suspect]
     Indication: HYPERTENSION
     Dosage: 5 MG, UNK
     Route: 048
     Dates: end: 20090519
  2. NORFLOXACIN [Suspect]
     Indication: URINARY TRACT INFECTION
     Dosage: 400 MG, 2X/DAY
     Route: 048
     Dates: start: 20090512, end: 20090519
  3. RAMIPRIL [Suspect]
     Indication: HYPERTENSION
     Dosage: 1 DF, 1X/DAY
     Route: 048
     Dates: end: 20090519
  4. KARDEGIC [Concomitant]
     Dosage: 1 DF, 1X/DAY
  5. DEROXAT [Concomitant]
     Dosage: 1 DF, 1X/DAY

REACTIONS (2)
  - MALAISE [None]
  - PETIT MAL EPILEPSY [None]
